FAERS Safety Report 9265551 (Version 1)
Quarter: 2013Q2

REPORT INFORMATION
  Report Type: Spontaneous
  Country: US (occurrence: US)
  Receive Date: 20130501
  Receipt Date: 20130501
  Transmission Date: 20140414
  Serious: No
  Sender: FDA-Public Use
  Company Number: US-009507513-1304USA016282

PATIENT
  Age: 39 Year
  Sex: Female

DRUGS (3)
  1. DULERA [Suspect]
     Indication: ASTHMA
     Dosage: 200 OVER 5, 4 PUFFS A DAY
     Route: 055
     Dates: start: 20130325
  2. ZYRTEC [Concomitant]
  3. METFORMIN [Concomitant]

REACTIONS (2)
  - Cyanosis [Unknown]
  - Cardiac disorder [Unknown]
